FAERS Safety Report 8066913-7 (Version None)
Quarter: 2012Q1

REPORT INFORMATION
  Report Type: 
  Country: None (occurrence: None)
  Receive Date: 20120124
  Receipt Date: 20120119
  Transmission Date: 20120608
  Serious: Yes (Life-Threatening)
  Sender: FDA-Public Use
  Company Number: GXKR2012DE000621

PATIENT

DRUGS (7)
  1. ADALAT [Concomitant]
     Indication: CORONARY ARTERY DISEASE
     Route: 048
  2. ISOSORBIDE DINITRATE [Concomitant]
     Indication: CORONARY ARTERY DISEASE
     Route: 048
  3. CAPTOPRIL [Concomitant]
     Route: 048
  4. FUROSEMIDE [Concomitant]
     Route: 048
  5. SOTALOL HCL [Concomitant]
     Indication: TACHYARRHYTHMIA
     Route: 048
  6. NOVODIGAL MITE [Concomitant]
     Indication: TACHYARRHYTHMIA
     Route: 048
  7. METFORMIN HYDROCHLORIDE [Suspect]
     Indication: DIABETES MELLITUS
     Route: 048
     Dates: start: 19981101

REACTIONS (7)
  - LUNG DISORDER [None]
  - BLOOD CREATININE INCREASED [None]
  - HYPERKALAEMIA [None]
  - LACTIC ACIDOSIS [None]
  - BRADYCARDIA [None]
  - RENAL FAILURE [None]
  - ARRHYTHMIA [None]
